FAERS Safety Report 23139321 (Version 1)
Quarter: 2023Q4

REPORT INFORMATION
  Report Type: Spontaneous
  Country: US (occurrence: US)
  Receive Date: 20231102
  Receipt Date: 20231102
  Transmission Date: 20240110
  Serious: No
  Sender: FDA-Public Use
  Company Number: US-BAYER-2023A148440

PATIENT
  Sex: Female

DRUGS (2)
  1. CLIMARA [Suspect]
     Active Substance: ESTRADIOL
     Dosage: 0.025 MG
     Route: 062
     Dates: start: 20231004
  2. CLIMARA [Suspect]
     Active Substance: ESTRADIOL
     Dosage: 0.035 MG
     Route: 062

REACTIONS (5)
  - Headache [None]
  - Emotional disorder [None]
  - Incorrect dose administered [None]
  - Product supply issue [None]
  - Product prescribing issue [None]

NARRATIVE: CASE EVENT DATE: 20231004
